FAERS Safety Report 24870906 (Version 1)
Quarter: 2025Q1

REPORT INFORMATION
  Report Type: Spontaneous
  Country: US (occurrence: US)
  Receive Date: 20250121
  Receipt Date: 20250121
  Transmission Date: 20250409
  Serious: No
  Sender: ALEXION PHARMACEUTICALS
  Company Number: US-AstraZeneca-CH-00789995A

PATIENT
  Weight: 54 kg

DRUGS (1)
  1. TRUQAP [Suspect]
     Active Substance: CAPIVASERTIB
     Indication: Breast cancer female

REACTIONS (4)
  - Product dose omission issue [Unknown]
  - Dry mouth [Unknown]
  - Thirst [Unknown]
  - Abdominal pain [Unknown]
